FAERS Safety Report 5192707-6 (Version None)
Quarter: 2006Q4

REPORT INFORMATION
  Report Type: 
  Country: None (occurrence: None)
  Receive Date: 20061228
  Receipt Date: 20061218
  Transmission Date: 20070319
  Serious: Yes (Other)
  Sender: FDA-Public Use
  Company Number: US-BRISTOL-MYERS SQUIBB COMPANY-13617378

PATIENT
  Age: 44 Year
  Sex: Female

DRUGS (6)
  1. NEFAZODONE HCL [Suspect]
  2. GABAPENTIN [Suspect]
  3. CARVEDILOL [Concomitant]
  4. RABEPRAZOLE SODIUM [Concomitant]
  5. DIGOXIN [Concomitant]
  6. QUINAPRIL [Concomitant]

REACTIONS (10)
  - COORDINATION ABNORMAL [None]
  - DIZZINESS [None]
  - ELECTROCARDIOGRAM QRS COMPLEX PROLONGED [None]
  - ELECTROCARDIOGRAM QT CORRECTED INTERVAL PROLONGED [None]
  - HYPOTENSION [None]
  - LETHARGY [None]
  - MENTAL STATUS CHANGES [None]
  - OVERDOSE [None]
  - SOMNOLENCE [None]
  - TACHYCARDIA [None]
